FAERS Safety Report 22049272 (Version 1)
Quarter: 2023Q1

REPORT INFORMATION
  Report Type: Spontaneous
  Country: US (occurrence: None)
  Receive Date: 20230228
  Receipt Date: 20230228
  Transmission Date: 20230418
  Serious: No
  Sender: FDA-Public Use
  Company Number: None

PATIENT
  Age: 83 Year
  Sex: Female
  Weight: 102.1 kg

DRUGS (7)
  1. LENALIDOMIDE [Suspect]
     Active Substance: LENALIDOMIDE
     Indication: Plasma cell myeloma
     Dosage: OTHER FREQUENCY : 21D ON 7D OFF;?
     Route: 048
     Dates: start: 202212
  2. AMLODIPINE [Concomitant]
  3. CLONDIDINE [Concomitant]
  4. ELIQUIS [Concomitant]
  5. FUROSEMIDE [Concomitant]
  6. OLMESARTAN [Concomitant]
  7. VITAMIN B, C + D [Concomitant]

REACTIONS (4)
  - Decreased appetite [None]
  - Weight decreased [None]
  - Skin discolouration [None]
  - Fatigue [None]
